FAERS Safety Report 9803056 (Version 1)
Quarter: 2014Q1

REPORT INFORMATION
  Report Type: Spontaneous
  Country: AR (occurrence: AR)
  Receive Date: 20140108
  Receipt Date: 20140108
  Transmission Date: 20141002
  Serious: Yes (Death)
  Sender: FDA-Public Use
  Company Number: AR-SA-2014SA000867

PATIENT
  Age: 46 Year
  Sex: Male

DRUGS (6)
  1. FABRAZYME [Suspect]
     Indication: FABRY^S DISEASE
     Route: 042
     Dates: start: 200808, end: 201303
  2. ENALAPRIL [Concomitant]
     Route: 048
  3. AMLODIPINE [Concomitant]
     Route: 048
  4. CLOPIDOGREL [Concomitant]
     Route: 048
  5. ACETYLSALICYCLIC ACID [Concomitant]
     Route: 048
  6. ATORVASTATIN [Concomitant]
     Route: 048

REACTIONS (1)
  - Renal failure chronic [Fatal]
